FAERS Safety Report 7951190-5 (Version None)
Quarter: 2011Q4

REPORT INFORMATION
  Report Type: 
  Country: None (occurrence: None)
  Receive Date: 20111201
  Receipt Date: 20111118
  Transmission Date: 20120403
  Serious: Yes (Hospitalization)
  Sender: FDA-Public Use
  Company Number: PHFR2011GB06094

PATIENT
  Sex: Male

DRUGS (4)
  1. CLOZARIL [Suspect]
     Indication: SCHIZOPHRENIA
     Dosage: 400 MG, QD
     Route: 048
     Dates: start: 20090427, end: 20111020
  2. AMISULPRIDE [Suspect]
     Dosage: 100 MG, BID
     Route: 048
  3. CLOZARIL [Suspect]
     Dosage: 400 MG/ DAY
     Route: 048
     Dates: start: 20111001
  4. HYOSCINE HYDROBROMIDE [Concomitant]
     Dosage: 150 UG, BID
     Route: 048

REACTIONS (12)
  - WHITE BLOOD CELL COUNT INCREASED [None]
  - DIARRHOEA HAEMORRHAGIC [None]
  - COLITIS [None]
  - VOMITING [None]
  - C-REACTIVE PROTEIN INCREASED [None]
  - RED BLOOD CELL COUNT DECREASED [None]
  - TACHYCARDIA [None]
  - MEAN CELL HAEMOGLOBIN CONCENTRATION INCREASED [None]
  - HAEMATOCRIT DECREASED [None]
  - BLOOD UREA DECREASED [None]
  - PLATELET COUNT DECREASED [None]
  - NEUTROPHIL COUNT INCREASED [None]
